FAERS Safety Report 20945500 (Version 2)
Quarter: 2022Q3

REPORT INFORMATION
  Report Type: Spontaneous
  Country: DE (occurrence: DE)
  Receive Date: 20220610
  Receipt Date: 20220720
  Transmission Date: 20221027
  Serious: Yes (Other)
  Sender: FDA-Public Use
  Company Number: DE-002147023-NVSC2022DE125428

PATIENT
  Sex: Female

DRUGS (4)
  1. RITUXIMAB [Suspect]
     Active Substance: RITUXIMAB
     Route: 041
     Dates: start: 2015
  2. MABTHERA [Suspect]
     Active Substance: RITUXIMAB
     Route: 065
     Dates: start: 2015
  3. BENDAMUSTINE [Suspect]
     Active Substance: BENDAMUSTINE
     Route: 065
     Dates: start: 2015
  4. CORTISONE [Suspect]
     Active Substance: CORTISONE

REACTIONS (13)
  - Deafness [Unknown]
  - Oral herpes [Unknown]
  - Pain [Unknown]
  - Decreased appetite [Unknown]
  - Vomiting [Unknown]
  - Blood pressure increased [Unknown]
  - Weight decreased [Unknown]
  - Immune thrombocytopenia [Unknown]
  - Cough [Unknown]
  - Influenza [Unknown]
  - Pyrexia [Unknown]
  - Eye discharge [Unknown]
  - Tinnitus [Unknown]

NARRATIVE: CASE EVENT DATE: 20170101
